FAERS Safety Report 7404775-9 (Version None)
Quarter: 2011Q2

REPORT INFORMATION
  Report Type: 
  Country: None (occurrence: None)
  Receive Date: 20110411
  Receipt Date: 20081231
  Transmission Date: 20111010
  Serious: No
  Sender: FDA-Public Use
  Company Number: 2009BI000083

PATIENT
  Sex: Male

DRUGS (3)
  1. AVONEX [Concomitant]
     Route: 030
     Dates: start: 20090110
  2. TYSABRI [Suspect]
     Indication: MULTIPLE SCLEROSIS
     Route: 042
     Dates: start: 20070606, end: 20080312
  3. AVONEX [Concomitant]
     Indication: MULTIPLE SCLEROSIS
     Route: 030
     Dates: start: 20020521

REACTIONS (7)
  - MEMORY IMPAIRMENT [None]
  - MULTIPLE SCLEROSIS [None]
  - MULTIPLE SCLEROSIS RELAPSE [None]
  - HYPOAESTHESIA [None]
  - VISUAL IMPAIRMENT [None]
  - AGEUSIA [None]
  - DRUG INEFFECTIVE [None]
